FAERS Safety Report 4470239-8 (Version None)
Quarter: 2004Q4

REPORT INFORMATION
  Report Type: 
  Country: None (occurrence: None)
  Receive Date: 20041008
  Receipt Date: 20041004
  Transmission Date: 20050328
  Serious: Yes (Hospitalization)
  Sender: FDA-Public Use
  Company Number: AU-MERCK-0410AUS00035

PATIENT
  Sex: Female

DRUGS (3)
  1. ASPIRIN [Concomitant]
     Route: 065
  2. DIABEX [Concomitant]
     Indication: DIABETES MELLITUS
     Route: 048
  3. VIOXX [Suspect]
     Indication: BURSITIS
     Route: 048
     Dates: start: 20001001, end: 20041001

REACTIONS (4)
  - CEREBROVASCULAR ACCIDENT [None]
  - DROOLING [None]
  - GAIT DISTURBANCE [None]
  - TRANSIENT ISCHAEMIC ATTACK [None]
